FAERS Safety Report 9008859 (Version 1)
Quarter: 2013Q1

REPORT INFORMATION
  Report Type: Spontaneous
  Country: US (occurrence: US)
  Receive Date: 20130111
  Receipt Date: 20130111
  Transmission Date: 20140127
  Serious: Yes (Other)
  Sender: FDA-Public Use
  Company Number: US-009507513-1301USA001490

PATIENT
  Age: 70 Year
  Sex: Female

DRUGS (13)
  1. MONTELUKAST SODIUM [Suspect]
     Indication: GASTROINTESTINAL DISORDER
     Dosage: 10 MG, QD
     Route: 048
  2. VOLMAX [Suspect]
  3. FLOVENT [Suspect]
     Dosage: UNK, PRN
     Route: 055
  4. ALBUTEROL [Suspect]
     Dosage: UNK, PRN
     Route: 055
  5. FUROSEMIDE [Suspect]
     Dosage: 40 MG, BID
  6. PROMETHAZINE [Suspect]
     Dosage: 25 MG, PRN
     Route: 048
  7. DICYCLOMINE HYDROCHLORIDE [Suspect]
     Dosage: 10 MG, QD
     Route: 048
  8. POTASSIUM CHLORIDE [Suspect]
     Dosage: 20 MG, QD
     Route: 048
  9. COUMADIN [Suspect]
     Dosage: 5 MG, QD
     Route: 048
  10. PREDNISONE [Suspect]
     Dosage: 5 MG, QD
     Route: 048
  11. PREVACID [Suspect]
     Route: 048
  12. ATROVENT [Suspect]
     Dosage: 18 MCG, PRN
     Route: 055
  13. SEREVENT [Concomitant]
     Dosage: UNK, PRN

REACTIONS (1)
  - Anaemia [Unknown]
